FAERS Safety Report 9183231 (Version 2)
Quarter: 2014Q1

REPORT INFORMATION
  Report Type: Spontaneous
  Country: US (occurrence: US)
  Receive Date: 20130322
  Receipt Date: 20140318
  Transmission Date: 20141002
  Serious: Yes (Life-Threatening, Other)
  Sender: FDA-Public Use
  Company Number: US-BRISTOL-MYERS SQUIBB COMPANY-17055682

PATIENT
  Age: 67 Year
  Sex: Male

DRUGS (1)
  1. ERBITUX [Suspect]
     Indication: MUCOEPIDERMOID CARCINOMA
     Route: 042
     Dates: start: 20121012

REACTIONS (1)
  - Infusion related reaction [Unknown]
